FAERS Safety Report 6431218 (Version 9)
Quarter: 2012Q4

REPORT INFORMATION
  Report Type: Report from Study
  Country: US (occurrence: US)
  Receive Date: 20071001
  Receipt Date: 20121129
  Transmission Date: 20130627
  Serious: Yes (Other)
  Sender: FDA-Public Use
  Company Number: US-BRISTOL-MYERS SQUIBB COMPANY-13921481

PATIENT
  Age: 0 Year
  Sex: Female
  Weight: 2.95 kg

DRUGS (8)
  1. EFAVIRENZ CAPS [Suspect]
     Indication: HIV INFECTION
     Dosage: Prior to LMP to 1 1/2 weeks after LMP (Still PTC)
     Route: 064
     Dates: end: 20070627
  2. COMBIVIR [Suspect]
     Indication: HIV INFECTION
     Dosage: PTC to delivery
     Route: 064
  3. VIRACEPT [Suspect]
     Indication: HIV INFECTION
     Dosage: 1 1/2 weeks after LMP (still PTC) for one day
     Route: 064
     Dates: start: 20070627, end: 20070627
  4. KALETRA [Suspect]
     Indication: HIV INFECTION
     Dosage: 13 weeks to delivery
     Route: 064
     Dates: start: 20070913
  5. RETROVIR [Suspect]
     Indication: HIV INFECTION
     Dosage: Given at delivery
     Route: 064
     Dates: start: 20080108, end: 20080108
  6. ATORVASTATIN [Suspect]
  7. INSULIN [Suspect]
  8. FOLATE [Concomitant]

REACTIONS (4)
  - Cleft lip and palate [Unknown]
  - Anophthalmos [Unknown]
  - Amniotic band syndrome [Unknown]
  - Neural tube defect [Unknown]
